FAERS Safety Report 10142220 (Version 3)
Quarter: 2014Q4

REPORT INFORMATION
  Report Type: Report from Study
  Country: US (occurrence: US)
  Receive Date: 20140429
  Receipt Date: 20141028
  Transmission Date: 20150528
  Serious: Yes (Hospitalization)
  Sender: FDA-Public Use
  Company Number: PHEH2014US008449

PATIENT
  Age: 67 Year
  Sex: Male

DRUGS (1)
  1. GLEEVEC [Suspect]
     Active Substance: IMATINIB MESYLATE
     Indication: GASTRIC CANCER
     Dosage: 400 MG, ONCE DAILY
     Route: 048

REACTIONS (7)
  - Cerebrovascular accident [Recovered/Resolved with Sequelae]
  - Movement disorder [Unknown]
  - Blindness [Unknown]
  - Visual field defect [Unknown]
  - Hypersomnia [Unknown]
  - Hypoaesthesia [Recovering/Resolving]
  - Tunnel vision [Unknown]

NARRATIVE: CASE EVENT DATE: 20140228
